FAERS Safety Report 15241124 (Version 1)
Quarter: 2018Q3

REPORT INFORMATION
  Report Type: Spontaneous
  Country: US (occurrence: US)
  Receive Date: 20180711
  Receipt Date: 20180711
  Transmission Date: 20181010
  Serious: Yes (Hospitalization)
  Sender: FDA-Public Use
  Company Number: None

PATIENT
  Age: 68 Year
  Sex: Female

DRUGS (1)
  1. CAPECITABINE TAB 500MG [Suspect]
     Active Substance: CAPECITABINE
     Route: 048
     Dates: start: 20180626, end: 20180711

REACTIONS (3)
  - Tenderness [None]
  - Palmar-plantar erythrodysaesthesia syndrome [None]
  - Erythema [None]

NARRATIVE: CASE EVENT DATE: 20180701
